FAERS Safety Report 17685637 (Version 4)
Quarter: 2023Q1

REPORT INFORMATION
  Report Type: Spontaneous
  Country: FR (occurrence: FR)
  Receive Date: 20200420
  Receipt Date: 20230227
  Transmission Date: 20230417
  Serious: Yes (Hospitalization, Other)
  Sender: FDA-Public Use
  Company Number: FR-002147023-NVSC2020FR080988

PATIENT
  Age: 8 Year
  Sex: Female

DRUGS (7)
  1. MYCOPHENOLATE MOFETIL [Suspect]
     Active Substance: MYCOPHENOLATE MOFETIL
     Indication: Neuromyelitis optica spectrum disorder
     Dosage: UNK
     Route: 065
     Dates: start: 2012, end: 2015
  2. MYCOPHENOLATE MOFETIL [Suspect]
     Active Substance: MYCOPHENOLATE MOFETIL
     Indication: Immunosuppressant drug therapy
     Dosage: UNK
     Route: 065
     Dates: start: 2012, end: 2016
  3. RITUXIMAB [Suspect]
     Active Substance: RITUXIMAB
     Indication: Immunosuppressant drug therapy
     Dosage: INITIALLY AT EACH RELAPSE , THEN EVERY 6 MONTHS
     Route: 042
     Dates: start: 2009, end: 2017
  4. RITUXIMAB [Suspect]
     Active Substance: RITUXIMAB
     Indication: Neuromyelitis optica spectrum disorder
     Dosage: 375 MILLIGRAM/SQ. METER
     Route: 042
     Dates: start: 2013
  5. RITUXIMAB [Suspect]
     Active Substance: RITUXIMAB
     Dosage: UNK
     Route: 042
  6. OFATUMUMAB [Concomitant]
     Active Substance: OFATUMUMAB
     Indication: Neuromyelitis optica spectrum disorder
     Dosage: ONE INJECTION OF 20 MG EVERY WEEK DURING 4 WEEKS
     Route: 065
     Dates: start: 201708
  7. OFATUMUMAB [Concomitant]
     Active Substance: OFATUMUMAB
     Dosage: 20 MG, Q4W ONE INJECTION OF 20 MG EVERY 4 WEEKS
     Route: 065

REACTIONS (10)
  - Myelitis transverse [Unknown]
  - Neuromyelitis optica spectrum disorder [Unknown]
  - Anaphylactoid reaction [Unknown]
  - Sepsis [Unknown]
  - Off label use [Unknown]
  - Device related sepsis [Recovered/Resolved]
  - Infusion related reaction [Unknown]
  - Drug specific antibody present [Unknown]
  - Condition aggravated [Unknown]
  - Product use in unapproved indication [Unknown]

NARRATIVE: CASE EVENT DATE: 20090101
